FAERS Safety Report 13562980 (Version 1)
Quarter: 2017Q2

REPORT INFORMATION
  Report Type: Spontaneous
  Country: US (occurrence: US)
  Receive Date: 20170518
  Receipt Date: 20170518
  Transmission Date: 20170830
  Serious: Yes (Other)
  Sender: FDA-Public Use
  Company Number: None

PATIENT
  Age: 86 Year
  Sex: Male
  Weight: 78.8 kg

DRUGS (1)
  1. RITUXAN [Suspect]
     Active Substance: RITUXIMAB
     Indication: CHRONIC LYMPHOCYTIC LEUKAEMIA
     Dosage: 375 MG/M 2 MILLIGRAM(S)/SQ. METER? OTHER FREQUENCY:Q 28 DAYS;?
     Route: 041
     Dates: start: 20170511, end: 20170511

REACTIONS (5)
  - Tremor [None]
  - Nausea [None]
  - Joint stiffness [None]
  - Chills [None]
  - Back pain [None]

NARRATIVE: CASE EVENT DATE: 20170511
